FAERS Safety Report 5895325-7 (Version None)
Quarter: 2008Q3

REPORT INFORMATION
  Report Type: 
  Country: None (occurrence: None)
  Receive Date: 20080924
  Receipt Date: 20080919
  Transmission Date: 20090109
  Serious: Yes (Hospitalization, Other)
  Sender: FDA-Public Use
  Company Number: US-ASTRAZENECA-2008UW15683

PATIENT
  Age: 70 Year
  Sex: Female
  Weight: 90.7 kg

DRUGS (5)
  1. CRESTOR [Suspect]
     Dosage: 10 MG
     Route: 048
     Dates: start: 20080601
  2. METOPROLOL TARTRATE [Concomitant]
     Indication: BLOOD PRESSURE ABNORMAL
     Dosage: 100 MG
  3. COUMADIN [Concomitant]
  4. HORMONES [Concomitant]
     Dosage: 1 EVERY OTHER DAY
  5. LASIX [Concomitant]
     Dosage: 1 DAILY

REACTIONS (5)
  - ADVERSE EVENT [None]
  - COAGULATION TIME PROLONGED [None]
  - IRRITABILITY [None]
  - MOOD ALTERED [None]
  - PAIN IN JAW [None]
